FAERS Safety Report 21561525 (Version 1)
Quarter: 2022Q4

REPORT INFORMATION
  Report Type: Spontaneous
  Country: FR (occurrence: FR)
  Receive Date: 20221107
  Receipt Date: 20221107
  Transmission Date: 20230113
  Serious: Yes (Other)
  Sender: FDA-Public Use
  Company Number: None

PATIENT
  Age: 42 Year
  Sex: Female
  Weight: 67 kg

DRUGS (4)
  1. EUTHYROX [Suspect]
     Active Substance: LEVOTHYROXINE SODIUM
     Indication: Hypothyroidism
     Dosage: MICROGRAMS TABLETS
     Route: 048
     Dates: start: 20210501, end: 20210531
  2. LEVOTHYROXINE [Suspect]
     Active Substance: LEVOTHYROXINE
     Indication: Hypothyroidism
     Dosage: MICROGRAMS, SCORED TABLET
     Route: 048
     Dates: start: 20210303, end: 20210430
  3. LEVOTHYROXINE SODIUM [Suspect]
     Active Substance: LEVOTHYROXINE SODIUM
     Indication: Thyroidectomy
     Dosage: MICROGRAMS ORAL SOLUTION IN A SINGLE-DOSE CONTAINER
     Route: 048
     Dates: start: 20210801, end: 20211130
  4. LEVOTHYROXINE SODIUM [Suspect]
     Active Substance: LEVOTHYROXINE SODIUM
     Indication: Hypothyroidism
     Dosage: MICROGRAMS, TABLET
     Route: 048
     Dates: start: 20211201, end: 20220228

REACTIONS (7)
  - Suicidal ideation [Not Recovered/Not Resolved]
  - Disturbance in attention [Not Recovered/Not Resolved]
  - Cardiac disorder [Not Recovered/Not Resolved]
  - Gastrointestinal disorder [Not Recovered/Not Resolved]
  - Insomnia [Not Recovered/Not Resolved]
  - Myalgia [Not Recovered/Not Resolved]
  - Weight increased [Not Recovered/Not Resolved]
